FAERS Safety Report 18881709 (Version 2)
Quarter: 2021Q2

REPORT INFORMATION
  Report Type: Spontaneous
  Country: PT (occurrence: PT)
  Receive Date: 20210211
  Receipt Date: 20210409
  Transmission Date: 20210717
  Serious: Yes (Other)
  Sender: FDA-Public Use
  Company Number: NVSC2021PT028673

PATIENT
  Age: 62 Year
  Sex: Female

DRUGS (2)
  1. SEEBRI BREEZHALER [Suspect]
     Active Substance: GLYCOPYRROLATE
     Indication: CHRONIC OBSTRUCTIVE PULMONARY DISEASE
     Dosage: UNK, QD (USUALLY A DOSE IN THE AFTERNOON)
     Route: 065
  2. XARELTO [Concomitant]
     Active Substance: RIVAROXABAN
     Indication: PRODUCT USED FOR UNKNOWN INDICATION
     Route: 065

REACTIONS (19)
  - Dyspnoea [Unknown]
  - Musculoskeletal pain [Unknown]
  - Lung disorder [Unknown]
  - Gait disturbance [Unknown]
  - Visual impairment [Recovered/Resolved]
  - Eye swelling [Recovered/Resolved]
  - Dry mouth [Unknown]
  - Arthralgia [Unknown]
  - Condition aggravated [Unknown]
  - Pain in extremity [Unknown]
  - Swollen tongue [Unknown]
  - Extra dose administered [Unknown]
  - Product quality issue [Unknown]
  - Asphyxia [Unknown]
  - Pruritus [Unknown]
  - Swelling face [Unknown]
  - Abdominal pain upper [Unknown]
  - Respiratory distress [Unknown]
  - Eye pain [Recovered/Resolved]

NARRATIVE: CASE EVENT DATE: 20200202
